FAERS Safety Report 9006313 (Version 1)
Quarter: 2012Q4

REPORT INFORMATION
  Report Type: Spontaneous
  Country: DK (occurrence: None)
  Receive Date: 20121227
  Receipt Date: 20121227
  Transmission Date: 20130627
  Serious: Yes (Hospitalization)
  Sender: FDA-Public Use
  Company Number: 2012MA014214

PATIENT
  Age: 90 Year
  Sex: Female

DRUGS (7)
  1. RAMIPRIL [Suspect]
  2. TRIMETHOPRIM [Suspect]
     Indication: URINARY TRACT INFECTION
     Route: 048
     Dates: start: 20110916, end: 20110920
  3. FERROUS SULPHATE [Concomitant]
  4. ZOPICLONE [Concomitant]
  5. CLOPIDOGREL [Concomitant]
  6. ISOSORBIDE MONONITRATE [Concomitant]
  7. BISOPROLOL [Concomitant]

REACTIONS (4)
  - Fall [None]
  - Urinary tract infection [None]
  - Renal impairment [None]
  - Hyperkalaemia [None]
